FAERS Safety Report 13619246 (Version 1)
Quarter: 2017Q2

REPORT INFORMATION
  Report Type: Spontaneous
  Country: US (occurrence: US)
  Receive Date: 20170606
  Receipt Date: 20170606
  Transmission Date: 20170830
  Serious: Yes (Life-Threatening, Hospitalization, Disabling, Other)
  Sender: FDA-Public Use
  Company Number: None

PATIENT
  Age: 66 Year
  Sex: Female
  Weight: 56.25 kg

DRUGS (10)
  1. OMEGA FATS [Concomitant]
  2. DES [Suspect]
     Active Substance: DIETHYLSTILBESTROL
     Indication: PROPHYLAXIS
     Dosage: ?          QUANTITY:1 TABLET(S);?
     Route: 048
  3. VALIUM [Concomitant]
     Active Substance: DIAZEPAM
  4. MULTI-VITAMIN [Concomitant]
     Active Substance: .ALPHA.-TOCOPHEROL ACETATE, DL-\ASCORBIC ACID\CYANOCOBALAMIN\FLUORIDE ION\FOLIC ACID\NIACIN\PYRIDOXINE\RIBOFLAVIN\THIAMINE\VITAMIN A\VITAMIN D
  5. METHADONE [Concomitant]
     Active Substance: METHADONE HYDROCHLORIDE
  6. VITAMIN C [Concomitant]
     Active Substance: ASCORBIC ACID
  7. VITAMINS D3 [Concomitant]
  8. DES [Suspect]
     Active Substance: DIETHYLSTILBESTROL
     Indication: ABORTION SPONTANEOUS
     Dosage: ?          QUANTITY:1 TABLET(S);?
     Route: 048
  9. BACH REMEDIES [Concomitant]
  10. FLORAL ESSENCES [Concomitant]

REACTIONS (19)
  - Immune system disorder [None]
  - Anxiety [None]
  - Congenital anomaly in offspring [None]
  - Infertility [None]
  - Cystitis interstitial [None]
  - Breast cyst [None]
  - Insomnia [None]
  - Malaise [None]
  - Cognitive disorder [None]
  - Cyst [None]
  - Gastrointestinal disorder [None]
  - Endometriosis [None]
  - Pain [None]
  - Maternal drugs affecting foetus [None]
  - Reproductive tract disorder [None]
  - Ovarian cyst [None]
  - Cardiac disorder [None]
  - Pelvic floor dyssynergia [None]
  - Drug ineffective [None]

NARRATIVE: CASE EVENT DATE: 19500625
